FAERS Safety Report 8055834-1 (Version None)
Quarter: 2012Q1

REPORT INFORMATION
  Report Type: 
  Country: None (occurrence: None)
  Receive Date: 20120119
  Receipt Date: 20120119
  Transmission Date: 20120608
  Serious: Yes (Hospitalization)
  Sender: FDA-Public Use
  Company Number: None

PATIENT
  Age: 55 Year
  Sex: Female
  Weight: 50.5 kg

DRUGS (2)
  1. SALSALATE [Concomitant]
  2. SULINDAC [Suspect]
     Indication: OSTEOARTHRITIS
     Dosage: 200MG
     Route: 048
     Dates: start: 20110705, end: 20110726

REACTIONS (1)
  - DRUG RASH WITH EOSINOPHILIA AND SYSTEMIC SYMPTOMS [None]
